APPROVED DRUG PRODUCT: TETRACAINE HYDROCHLORIDE
Active Ingredient: TETRACAINE HYDROCHLORIDE
Strength: 0.5%
Dosage Form/Route: SOLUTION;OPHTHALMIC
Application: A217227 | Product #001 | TE Code: AB1
Applicant: SOMERSET THERAPEUTICS LLC
Approved: Dec 20, 2024 | RLD: No | RS: No | Type: RX